FAERS Safety Report 16386476 (Version 3)
Quarter: 2019Q3

REPORT INFORMATION
  Report Type: Report from Study
  Country: None (occurrence: FR)
  Receive Date: 20190603
  Receipt Date: 20190702
  Transmission Date: 20191004
  Serious: Yes (Other)
  Sender: FDA-Public Use
  Company Number: FR-ABBVIE-19S-056-2729691-00

PATIENT
  Age: 67 Year
  Sex: Female

DRUGS (2)
  1. DUODOPA [Suspect]
     Active Substance: CARBIDOPA\LEVODOPA
     Indication: PARKINSON^S DISEASE
     Dosage: MD 6ML; ED 6ML ; CFR (DURING THE DAY) 6ML/H ;  CFR (DURING THE NIGHT) 3ML/H
     Route: 050
     Dates: start: 20160809
  2. ARIXTRA [Concomitant]
     Active Substance: FONDAPARINUX SODIUM
     Indication: ANTICOAGULANT THERAPY

REACTIONS (13)
  - Secretion discharge [Unknown]
  - Incorrect route of product administration [Unknown]
  - Asthenia [Unknown]
  - Hyperthermia [Unknown]
  - Lung disorder [Unknown]
  - Productive cough [Unknown]
  - Confusional state [Unknown]
  - Oxygen saturation decreased [Not Recovered/Not Resolved]
  - Device issue [Unknown]
  - Oesophageal motility disorder [Unknown]
  - Dyspnoea [Unknown]
  - Fall [Unknown]
  - Haematoma [Unknown]

NARRATIVE: CASE EVENT DATE: 20190324
